FAERS Safety Report 17166463 (Version 2)
Quarter: 2020Q1

REPORT INFORMATION
  Report Type: Spontaneous
  Country: US (occurrence: US)
  Receive Date: 20191217
  Receipt Date: 20200220
  Transmission Date: 20200409
  Serious: Yes (Other)
  Sender: FDA-Public Use
  Company Number: US-GALDERMA-US19064088

PATIENT
  Age: 42 Year
  Sex: Male

DRUGS (1)
  1. DOXYCYCLINE. [Suspect]
     Active Substance: DOXYCYCLINE
     Indication: PRODUCT USED FOR UNKNOWN INDICATION
     Dosage: A SINGLE DOSE OF DOXYCYCLINE BEFORE ADR
     Route: 065

REACTIONS (2)
  - Intracranial pressure increased [Unknown]
  - Papilloedema [Unknown]
